FAERS Safety Report 5077893-0 (Version None)
Quarter: 2006Q3

REPORT INFORMATION
  Report Type: 
  Country: None (occurrence: None)
  Receive Date: 20060720
  Receipt Date: 20051013
  Transmission Date: 20061208
  Serious: Yes (Other)
  Sender: FDA-Public Use
  Company Number: 05SWZ0156

PATIENT
  Age: 82 Year
  Sex: Male

DRUGS (12)
  1. AGGRASTAT [Suspect]
     Indication: CORONARY ANGIOPLASTY
     Dosage: 0.4UG/KG
     Dates: start: 20050517, end: 20050517
  2. AGGRASTAT [Suspect]
     Indication: ANGINA PECTORIS
     Dosage: .04UG/KG
     Dates: start: 20050531, end: 20050531
  3. NITROGLYCERIN [Concomitant]
  4. ASPIRIN [Concomitant]
  5. CAPTOPRIL [Concomitant]
  6. CLOPIDOGREL BISULFATE [Concomitant]
  7. HEPARIN [Concomitant]
  8. LISINOPRIL [Concomitant]
  9. METOPROLE TARTRATE (METOPROLOL TARTRATE) [Concomitant]
  10. NADROPARIN (NADROPARIN) [Concomitant]
  11. PROPRANOLOL HCL (PROPRANOLOL) [Concomitant]
  12. SIMVASTATIN [Concomitant]

REACTIONS (1)
  - THROMBOCYTOPENIA [None]
